FAERS Safety Report 4748638-6 (Version None)
Quarter: 2005Q3

REPORT INFORMATION
  Report Type: 
  Country: None (occurrence: None)
  Receive Date: 20050819
  Receipt Date: 20050808
  Transmission Date: 20060218
  Serious: Yes (Other)
  Sender: FDA-Public Use
  Company Number: AU-GILEAD-2005-0008618

PATIENT
  Sex: Male
  Weight: 67.8 kg

DRUGS (12)
  1. VIREAD [Suspect]
     Indication: HIV INFECTION
     Route: 048
     Dates: start: 20040413, end: 20050606
  2. VIREAD [Suspect]
     Route: 048
     Dates: start: 20030214, end: 20040112
  3. DDI [Concomitant]
     Indication: HIV INFECTION
     Route: 048
     Dates: start: 20030214, end: 20040112
  4. ATAZANAVIR [Concomitant]
     Indication: HIV INFECTION
     Route: 048
     Dates: start: 20040401, end: 20050609
  5. ATAZANAVIR [Concomitant]
     Route: 048
     Dates: start: 20030814, end: 20040112
  6. ATAZANAVIR [Concomitant]
     Route: 048
     Dates: start: 20030214, end: 20030814
  7. KALETRA [Concomitant]
     Indication: HIV INFECTION
     Route: 048
     Dates: start: 20040418
  8. RITONAVIR [Concomitant]
     Indication: HIV INFECTION
     Route: 048
     Dates: start: 20040401, end: 20050609
  9. RITONAVIR [Concomitant]
     Route: 048
     Dates: start: 20030814, end: 20040112
  10. ZOLOFT [Concomitant]
     Route: 048
     Dates: end: 20030410
  11. TEMAZEPAM [Concomitant]
     Route: 048
     Dates: end: 20030410
  12. BACTRIM [Concomitant]
     Dates: start: 20040202

REACTIONS (5)
  - BLOOD BILIRUBIN INCREASED [None]
  - BLOOD CREATININE INCREASED [None]
  - BLOOD LACTIC ACID INCREASED [None]
  - DRUG ADMINISTRATION ERROR [None]
  - PROTEIN URINE [None]
